FAERS Safety Report 15102854 (Version 4)
Quarter: 2018Q3

REPORT INFORMATION
  Report Type: Spontaneous
  Country: US (occurrence: US)
  Receive Date: 20180703
  Receipt Date: 20180913
  Transmission Date: 20181010
  Serious: No
  Sender: FDA-Public Use
  Company Number: US-SA-2018SA170426

PATIENT
  Age: 58 Year
  Sex: Female

DRUGS (4)
  1. HUMALOG [Suspect]
     Active Substance: INSULIN LISPRO
  2. TRULICITY [Suspect]
     Active Substance: DULAGLUTIDE
  3. TOUJEO [Suspect]
     Active Substance: INSULIN GLARGINE
     Indication: DIABETES MELLITUS
     Dosage: 22 U, HS
     Route: 065
  4. INVOKANA [Suspect]
     Active Substance: CANAGLIFLOZIN

REACTIONS (4)
  - Blood glucose decreased [Recovered/Resolved]
  - Device issue [Unknown]
  - Wrong drug administered [Unknown]
  - Constipation [Unknown]
